FAERS Safety Report 6199138-0 (Version None)
Quarter: 2009Q2

REPORT INFORMATION
  Report Type: 
  Country: None (occurrence: None)
  Receive Date: 20090522
  Receipt Date: 20090518
  Transmission Date: 20091009
  Serious: Yes (Death, Hospitalization)
  Sender: FDA-Public Use
  Company Number: US-ROCHE-621439

PATIENT
  Sex: Female
  Weight: 42.6 kg

DRUGS (1)
  1. CAPECITABINE [Suspect]
     Indication: GALLBLADDER CANCER
     Dosage: DOSE: 500 MG AM AND 500 MG PM
     Route: 048
     Dates: start: 20090207

REACTIONS (2)
  - MALIGNANT NEOPLASM PROGRESSION [None]
  - PAIN [None]
